FAERS Safety Report 6979111-2 (Version None)
Quarter: 2010Q3

REPORT INFORMATION
  Report Type: 
  Country: None (occurrence: None)
  Receive Date: 20100913
  Receipt Date: 20100902
  Transmission Date: 20110219
  Serious: Yes (Other)
  Sender: FDA-Public Use
  Company Number: PHFR2010GB00781

PATIENT
  Sex: Male

DRUGS (8)
  1. CLOZARIL [Suspect]
     Indication: SCHIZOPHRENIA
     Dosage: UNK
     Route: 048
     Dates: start: 20070813
  2. CLOZARIL [Suspect]
     Dosage: 400 MG/DAY
  3. CLOZARIL [Suspect]
     Dosage: 225 MG, BID
     Route: 048
  4. NICORETTE ^HOECHST MARION ROUSSEL^ [Concomitant]
     Dosage: UNK
  5. OMEPRAZOLE [Concomitant]
     Dosage: 20 MG, BID
     Route: 048
  6. NULYTELY [Concomitant]
     Dosage: UNK
     Route: 048
  7. ATROPINE SULFATE [Concomitant]
  8. VALPROIC ACID [Concomitant]
     Dosage: 1250 MG, BID
     Route: 048

REACTIONS (6)
  - BLADDER TRABECULATION [None]
  - GENERAL PHYSICAL CONDITION ABNORMAL [None]
  - HAEMATURIA [None]
  - MENTAL IMPAIRMENT [None]
  - RENAL CYST [None]
  - URINARY TRACT INFECTION [None]
